FAERS Safety Report 16855701 (Version 3)
Quarter: 2024Q2

REPORT INFORMATION
  Report Type: Spontaneous
  Country: SE (occurrence: SE)
  Receive Date: 20190926
  Receipt Date: 20240620
  Transmission Date: 20240716
  Serious: Yes (Death, Life-Threatening, Hospitalization, Other)
  Sender: FDA-Public Use
  Company Number: SE-MLMSERVICE-20190909-1942777-1

PATIENT
  Age: 73 Year
  Sex: Female

DRUGS (20)
  1. VENLAFAXINE [Interacting]
     Active Substance: VENLAFAXINE HYDROCHLORIDE
     Indication: Depression
     Dosage: 225 MG, UNK
     Route: 065
  2. FUROSEMIDE [Suspect]
     Active Substance: FUROSEMIDE
     Indication: Hypertension
     Dosage: UNK
     Route: 042
  3. METOPROLOL [Suspect]
     Active Substance: METOPROLOL
     Indication: Hypertension
     Dosage: UNK
     Route: 042
  4. MIDAZOLAM [Suspect]
     Active Substance: MIDAZOLAM
     Indication: Hypertension
     Dosage: UNK
     Route: 042
  5. MORPHINE [Suspect]
     Active Substance: MORPHINE
     Indication: Hypertension
     Dosage: 2.5 MILLIGRAM
     Route: 042
  6. AMLODIPINE [Suspect]
     Active Substance: AMLODIPINE BESYLATE
     Indication: Hypertension
     Dosage: 5 MILLIGRAM
     Route: 065
  7. MINOXIDIL [Suspect]
     Active Substance: MINOXIDIL
     Indication: Hypertension
     Dosage: 2.5 MILLIGRAM
     Route: 065
  8. ERYTHROMYCIN [Interacting]
     Active Substance: ERYTHROMYCIN
     Indication: Lower respiratory tract infection
     Dosage: UNK
     Route: 065
  9. ESCITALOPRAM [Interacting]
     Active Substance: ESCITALOPRAM OXALATE
     Indication: Depression
     Dosage: UNK (INCREASED TO ITS CURRENT DOSE 3 MONTHS AGO)
     Route: 065
  10. ESCITALOPRAM [Interacting]
     Active Substance: ESCITALOPRAM OXALATE
     Dosage: 15 MG, UNK
     Route: 065
  11. CLONIDINE [Suspect]
     Active Substance: CLONIDINE
     Indication: Hypertension
     Dosage: 150 MILLIGRAM
     Route: 042
  12. LABETALOL [Suspect]
     Active Substance: LABETALOL\LABETALOL HYDROCHLORIDE
     Indication: Hypertension
     Dosage: 10 MILLIGRAM, QH
     Route: 042
  13. CYPROHEPTADINE [Suspect]
     Active Substance: CYPROHEPTADINE
     Indication: Hypertension
     Dosage: 2 MILLIGRAM
     Route: 065
  14. CYPROHEPTADINE [Suspect]
     Active Substance: CYPROHEPTADINE
     Dosage: 2 MILLIGRAM, Q8H (2MG EVERY 120MIN FOR 8H)
     Route: 065
  15. CALCIUM [Concomitant]
     Active Substance: CALCIUM
     Indication: Hyperkalaemia
     Dosage: UNK
     Route: 065
  16. SODIUM BICARBONATE [Concomitant]
     Active Substance: SODIUM BICARBONATE
     Indication: Hyperkalaemia
     Dosage: UNK
     Route: 065
  17. DEXTROSE [Concomitant]
     Active Substance: DEXTROSE\DEXTROSE MONOHYDRATE
     Indication: Hyperkalaemia
     Dosage: UNK
     Route: 065
  18. ASPIRIN [Concomitant]
     Active Substance: ASPIRIN
     Indication: Coronary artery disease
     Dosage: UNK
     Route: 065
  19. ASPIRIN [Concomitant]
     Active Substance: ASPIRIN
     Indication: Antiplatelet therapy
  20. INSULIN NOS [Concomitant]
     Active Substance: INSULIN NOS
     Indication: Hyperkalaemia
     Dosage: UNK
     Route: 065

REACTIONS (10)
  - Ventricular fibrillation [Fatal]
  - Cardiac arrest [Fatal]
  - Serotonin syndrome [Fatal]
  - Drug interaction [Fatal]
  - Myocardial infarction [Fatal]
  - Myeloma cast nephropathy [Fatal]
  - Drug ineffective [Fatal]
  - Hypertension [Fatal]
  - Withdrawal hypertension [Fatal]
  - Renal failure [Unknown]
